FAERS Safety Report 11467367 (Version 1)
Quarter: 2015Q3

REPORT INFORMATION
  Report Type: Report from Study
  Country: CA (occurrence: CA)
  Receive Date: 20150908
  Receipt Date: 20150908
  Transmission Date: 20151125
  Serious: Yes (Life-Threatening, Hospitalization, Other)
  Sender: FDA-Public Use
  Company Number: CA-ABBVIE-15K-028-1458637-00

PATIENT
  Sex: Female

DRUGS (4)
  1. HUMIRA [Suspect]
     Active Substance: ADALIMUMAB
     Route: 058
     Dates: start: 20150821
  2. HUMIRA [Suspect]
     Active Substance: ADALIMUMAB
     Route: 058
     Dates: start: 2015, end: 2015
  3. HUMIRA [Suspect]
     Active Substance: ADALIMUMAB
     Indication: VASCULITIS
     Route: 058
     Dates: start: 20120306, end: 201504
  4. HUMIRA [Suspect]
     Active Substance: ADALIMUMAB
     Route: 058
     Dates: start: 2015, end: 2015

REACTIONS (10)
  - Pneumocystis jirovecii pneumonia [Recovered/Resolved]
  - Malaise [Recovered/Resolved]
  - Radius fracture [Unknown]
  - Behcet^s syndrome [Not Recovered/Not Resolved]
  - Tenosynovitis [Unknown]
  - Fall [Recovered/Resolved]
  - Wrist fracture [Unknown]
  - Renal failure [Not Recovered/Not Resolved]
  - Ankle fracture [Recovering/Resolving]
  - Meningitis aseptic [Not Recovered/Not Resolved]

NARRATIVE: CASE EVENT DATE: 2015
